FAERS Safety Report 13375105 (Version 3)
Quarter: 2019Q3

REPORT INFORMATION
  Report Type: Report from Study
  Country: None (occurrence: BR)
  Receive Date: 20170327
  Receipt Date: 20190911
  Transmission Date: 20191004
  Serious: Yes (Other)
  Sender: FDA-Public Use
  Company Number: BR-ABBVIE-17P-020-1912767-00

PATIENT
  Age: 67 Year
  Sex: Female
  Weight: 62 kg

DRUGS (10)
  1. HUMIRA [Suspect]
     Active Substance: ADALIMUMAB
     Indication: RHEUMATOID ARTHRITIS
     Route: 058
     Dates: start: 20150501, end: 201702
  2. HUMIRA [Suspect]
     Active Substance: ADALIMUMAB
     Indication: RHEUMATOID ARTHRITIS
     Route: 058
  3. NAPROXEN. [Concomitant]
     Active Substance: NAPROXEN
     Indication: PAIN
     Route: 048
     Dates: start: 2009
  4. CYCLOBENZAPRINE (MUSCULARE) [Concomitant]
     Indication: PAIN
     Route: 048
     Dates: start: 201609
  5. PREGABALIN. [Concomitant]
     Active Substance: PREGABALIN
     Indication: PAIN
     Route: 048
  6. CLONAZEPAM (RIVOTRIL) [Concomitant]
     Indication: SLEEP DISORDER THERAPY
     Route: 048
  7. VENLAFAXINE [Concomitant]
     Active Substance: VENLAFAXINE HYDROCHLORIDE
     Indication: DEPRESSION
     Route: 048
  8. PARACETAMOL/CODEIN (PACO) [Concomitant]
     Indication: PAIN
     Route: 048
  9. METHOTREXATE. [Concomitant]
     Active Substance: METHOTREXATE
     Indication: PRODUCT USED FOR UNKNOWN INDICATION
     Route: 048
     Dates: start: 2009
  10. PREDNISONE. [Concomitant]
     Active Substance: PREDNISONE
     Indication: PAIN
     Route: 048
     Dates: start: 1977

REACTIONS (13)
  - Hypertension [Recovering/Resolving]
  - Osteoarthritis [Unknown]
  - Gait disturbance [Unknown]
  - Pain [Unknown]
  - Ankle fracture [Not Recovered/Not Resolved]
  - Osteopenia [Unknown]
  - Device breakage [Not Recovered/Not Resolved]
  - Ankle deformity [Not Recovered/Not Resolved]
  - Blood pressure fluctuation [Not Recovered/Not Resolved]
  - Arthritis infective [Unknown]
  - Osteoporosis [Unknown]
  - Limb asymmetry [Unknown]
  - Fall [Recovered/Resolved]

NARRATIVE: CASE EVENT DATE: 201609
